FAERS Safety Report 8921941 (Version 1)
Quarter: 2012Q4

REPORT INFORMATION
  Report Type: Spontaneous
  Country: US (occurrence: None)
  Receive Date: 20121119
  Receipt Date: 20121119
  Transmission Date: 20130627
  Serious: Yes (Other)
  Sender: FDA-Public Use
  Company Number: None

PATIENT
  Age: 56 Year
  Sex: Female
  Weight: 106.6 kg

DRUGS (1)
  1. AMLODIPINE [Suspect]
     Indication: BLOOD PRESSURE HIGH
     Route: 048
     Dates: start: 20121111, end: 20121116

REACTIONS (6)
  - Headache [None]
  - Dizziness [None]
  - Abdominal pain upper [None]
  - Flatulence [None]
  - Abdominal distension [None]
  - Diarrhoea [None]
